FAERS Safety Report 25596677 (Version 1)
Quarter: 2025Q3

REPORT INFORMATION
  Report Type: Spontaneous
  Country: EU (occurrence: EU)
  Receive Date: 20250723
  Receipt Date: 20250723
  Transmission Date: 20251020
  Serious: Yes (Hospitalization, Other)
  Sender: HIKMA
  Company Number: None

PATIENT
  Age: 56 Year
  Sex: Female
  Weight: 49 kg

DRUGS (3)
  1. PEMETREXED MONOHYDRATE [Suspect]
     Active Substance: PEMETREXED MONOHYDRATE
     Indication: Lung adenocarcinoma stage IV
     Dosage: UNK UNK, 3W
     Route: 042
     Dates: start: 20241115, end: 20250407
  2. CARBOPLATIN [Suspect]
     Active Substance: CARBOPLATIN
     Indication: Lung adenocarcinoma stage IV
     Dosage: UNK UNK, 3W
     Route: 042
     Dates: start: 20241115, end: 20250127
  3. KEYTRUDA [Suspect]
     Active Substance: PEMBROLIZUMAB
     Indication: Lung adenocarcinoma stage IV
     Dosage: 200 MILLIGRAM, 3W
     Route: 042
     Dates: start: 20241230, end: 20250407

REACTIONS (1)
  - Acute kidney injury [Not Recovered/Not Resolved]

NARRATIVE: CASE EVENT DATE: 20250307
